FAERS Safety Report 7433415-8 (Version None)
Quarter: 2011Q2

REPORT INFORMATION
  Report Type: 
  Country: None (occurrence: None)
  Receive Date: 20110422
  Receipt Date: 20110415
  Transmission Date: 20111010
  Serious: Yes (Hospitalization, Other)
  Sender: FDA-Public Use
  Company Number: US-ELI_LILLY_AND_COMPANY-US201010001229

PATIENT
  Age: 62 Year
  Sex: Female

DRUGS (3)
  1. HUMALOG [Suspect]
     Dosage: UNK, AS NEEDED
  2. HUMALOG [Suspect]
     Indication: TYPE 2 DIABETES MELLITUS
     Dosage: UNK, AS NEEDED
  3. LANTUS [Concomitant]

REACTIONS (8)
  - BLOOD GLUCOSE INCREASED [None]
  - BLOOD GLUCOSE FLUCTUATION [None]
  - RENAL TRANSPLANT [None]
  - INJECTION SITE HAEMORRHAGE [None]
  - NERVOUSNESS [None]
  - BRONCHITIS [None]
  - RENAL CANCER [None]
  - DIALYSIS [None]
